FAERS Safety Report 4322578-9 (Version None)
Quarter: 2004Q1

REPORT INFORMATION
  Report Type: 
  Country: None (occurrence: None)
  Receive Date: 20040319
  Receipt Date: 20040303
  Transmission Date: 20041129
  Serious: Yes (Hospitalization)
  Sender: FDA-Public Use
  Company Number: DSA_24079_2004

PATIENT
  Age: 58 Year
  Sex: Male

DRUGS (5)
  1. TILDIEM [Suspect]
     Indication: HYPERTENSION
     Dosage: 400 MG QD PO
     Route: 048
     Dates: start: 20040108, end: 20040114
  2. ROSUVASTATIN [Suspect]
     Indication: HYPERCHOLESTEROLAEMIA
     Dosage: 10 MG QD PO
     Route: 048
     Dates: start: 20031007, end: 20040114
  3. ROSIGLITAZONE MALEATE [Suspect]
     Indication: DIABETES MELLITUS NON-INSULIN-DEPENDENT
     Dosage: 8 MG QD PO
     Route: 048
     Dates: end: 20040114
  4. ATENOLOL [Suspect]
     Indication: HYPERTENSION
     Dosage: 50 MG QD PO
     Route: 048
     Dates: start: 20040108, end: 20040114
  5. FOSINOPRIL SODIUM [Suspect]
     Indication: HYPERTENSION
     Dosage: 40 MG Q DAY PO
     Route: 048
     Dates: start: 20040108, end: 20040114

REACTIONS (4)
  - DRUG INTERACTION [None]
  - HEPATITIS ACUTE [None]
  - MYOSITIS [None]
  - RENAL FAILURE ACUTE [None]
